FAERS Safety Report 4968537-4 (Version None)
Quarter: 2006Q2

REPORT INFORMATION
  Report Type: 
  Country: None (occurrence: None)
  Receive Date: 20060410
  Receipt Date: 20050930
  Transmission Date: 20061013
  Serious: Yes (Death, Hospitalization)
  Sender: FDA-Public Use
  Company Number: US-MERCK-0510USA02038

PATIENT
  Age: 73 Year
  Sex: Female
  Weight: 85 kg

DRUGS (2)
  1. VIOXX [Suspect]
     Indication: RHEUMATOID ARTHRITIS
     Route: 048
     Dates: start: 19991004, end: 20010113
  2. VIOXX [Suspect]
     Route: 048
     Dates: start: 19991004, end: 20010113

REACTIONS (3)
  - CARDIAC FAILURE [None]
  - DEATH [None]
  - MYOCARDIAL INFARCTION [None]
